FAERS Safety Report 5264552-4 (Version None)
Quarter: 2007Q1

REPORT INFORMATION
  Report Type: 
  Country: None (occurrence: None)
  Receive Date: 20061213
  Receipt Date: 20040607
  Transmission Date: 20070707
  Serious: Yes (Other)
  Sender: FDA-Public Use
  Company Number: 2004UW13902

PATIENT
  Age: 63 Year
  Sex: Female
  Weight: 43.5453 kg

DRUGS (7)
  1. IRESSA [Suspect]
     Indication: NON-SMALL CELL LUNG CANCER
  2. ZANTAC [Suspect]
  3. DEXAMETHASONE [Concomitant]
  4. METOCLOPRAMIDE [Concomitant]
  5. DITROPAN [Concomitant]
  6. SUDAFED 12 HOUR [Concomitant]
  7. PLAVIX [Concomitant]

REACTIONS (4)
  - DRUG INTERACTION POTENTIATION [None]
  - GASTROOESOPHAGEAL REFLUX DISEASE [None]
  - HYPERAESTHESIA [None]
  - SKIN WARM [None]
